FAERS Safety Report 4588016-6 (Version None)
Quarter: 2005Q1

REPORT INFORMATION
  Report Type: 
  Country: None (occurrence: None)
  Receive Date: 20050217
  Receipt Date: 20050112
  Transmission Date: 20050727
  Serious: Yes (Death)
  Sender: FDA-Public Use
  Company Number: 2005S1000153

PATIENT
  Age: 75 Year
  Sex: Male

DRUGS (15)
  1. CLOZAPINE [Suspect]
     Indication: DEMENTIA OF THE ALZHEIMER'S TYPE, WITH DELUSIONS
     Dosage: 25MG BID, ORAL
     Route: 048
     Dates: start: 20040929
  2. CLOZAPINE [Suspect]
     Indication: DEMENTIA OF THE ALZHEIMER'S TYPE, WITH DEPRESSED MOOD
     Dosage: 25MG BID, ORAL
     Route: 048
     Dates: start: 20040929
  3. CLOZAPINE [Suspect]
     Indication: SENILE DEMENTIA
     Dosage: 25MG BID, ORAL
     Route: 048
     Dates: start: 20040929
  4. MORPHINE SUL INJ [Concomitant]
  5. FENTANYL [Concomitant]
  6. CEFTRIAXONE SODUM [Concomitant]
  7. METFORMIN HCL EXTENDED RELEASE [Concomitant]
  8. REPAGLINIDE [Concomitant]
  9. METOPROLOL TARTRATE [Concomitant]
  10. IOMIPRAMINE [Concomitant]
  11. CARBIDOPA AND LEVODOPA [Concomitant]
  12. RIVASTIGMINE TARTRATE [Concomitant]
  13. ACETAMINOPHEN [Concomitant]
  14. MAGNESIUM SULFATE [Concomitant]
  15. LACTULOSE [Concomitant]

REACTIONS (1)
  - NEOPLASM MALIGNANT [None]
